FAERS Safety Report 12234159 (Version 4)
Quarter: 2016Q3

REPORT INFORMATION
  Report Type: Spontaneous
  Country: US (occurrence: US)
  Receive Date: 20160404
  Receipt Date: 20160805
  Transmission Date: 20161109
  Serious: Yes (Other)
  Sender: FDA-Public Use
  Company Number: US-PFIZER INC-2016146232

PATIENT
  Age: 81 Year
  Sex: Female
  Weight: 90.7 kg

DRUGS (8)
  1. ATENOLOL. [Concomitant]
     Active Substance: ATENOLOL
     Dosage: 100 MG, 1X/DAY
  2. AMITRIPTYLINE [Concomitant]
     Active Substance: AMITRIPTYLINE
     Dosage: 1X/DAY (25 M 1 BEDTIME)
  3. COLESTID [Suspect]
     Active Substance: COLESTIPOL HYDROCHLORIDE
     Indication: DIARRHOEA
     Dosage: 5 MG, UNK, (ONE PACKET A DAY)
     Dates: start: 201603
  4. DONEPEZIL. [Concomitant]
     Active Substance: DONEPEZIL
     Dosage: 1 MG, 1X/DAY
  5. COLESTIPOL HCL [Suspect]
     Active Substance: COLESTIPOL HYDROCHLORIDE
     Indication: DIARRHOEA
     Dosage: 1 G, 2X/DAY
     Route: 048
  6. MONTELUKAST [Concomitant]
     Active Substance: MONTELUKAST SODIUM
     Dosage: 10 MG, UNK
  7. ALLOPURINOL. [Concomitant]
     Active Substance: ALLOPURINOL
     Dosage: UNK
  8. LOSARTAN/HCTZ [Concomitant]
     Active Substance: HYDROCHLOROTHIAZIDE\LOSARTAN
     Dosage: UNK (LOSARTAN POTASSIUM 100 MG / HYDROCHLOROTHIAZIDE 25 MG)

REACTIONS (6)
  - Influenza [Recovered/Resolved]
  - Visual acuity reduced [Unknown]
  - Product use issue [Unknown]
  - Malaise [Recovered/Resolved]
  - Macular degeneration [Unknown]
  - Cough [Recovered/Resolved]
